FAERS Safety Report 9255265 (Version 1)
Quarter: 2013Q1

REPORT INFORMATION
  Report Type: Spontaneous
  Country: US (occurrence: None)
  Receive Date: 20121212
  Receipt Date: 20121212
  Transmission Date: 20140127
  Serious: No
  Sender: FDA-Public Use
  Company Number: 1209USA010803

PATIENT
  Age: 43 Year
  Sex: Male

DRUGS (4)
  1. PEGINTRON [Suspect]
     Indication: HEPATITIS C
     Dates: start: 20120907
  2. REBETOL [Suspect]
     Indication: HEPATITIS C
     Dates: start: 20120907
  3. VICTRELIS [Suspect]
     Indication: HEPATITIS C
     Dates: start: 20121012
  4. NICORETTE [Concomitant]

REACTIONS (13)
  - Chest pain [None]
  - Chest discomfort [None]
  - Dyspnoea [None]
  - Nausea [None]
  - Fatigue [None]
  - Sleep disorder [None]
  - Feeling hot [None]
  - Abdominal discomfort [None]
  - Dizziness [None]
  - Dehydration [None]
  - Sensation of heaviness [None]
  - Yellow skin [None]
  - Anxiety [None]
